FAERS Safety Report 24875613 (Version 1)
Quarter: 2025Q1

REPORT INFORMATION
  Report Type: Spontaneous
  Country: US (occurrence: US)
  Receive Date: 20250122
  Receipt Date: 20250122
  Transmission Date: 20250409
  Serious: Yes (Other)
  Sender: ASTELLAS
  Company Number: US-ASTELLAS-2025-AER-003508

PATIENT
  Sex: Female

DRUGS (1)
  1. IZERVAY [Suspect]
     Active Substance: AVACINCAPTAD PEGOL SODIUM
     Indication: Product used for unknown indication
     Route: 065
     Dates: start: 20241217, end: 20241217

REACTIONS (2)
  - Vitritis [Unknown]
  - Uveitis [Unknown]
